FAERS Safety Report 18737847 (Version 1)
Quarter: 2021Q1

REPORT INFORMATION
  Report Type: Spontaneous
  Country: IN (occurrence: IN)
  Receive Date: 20210114
  Receipt Date: 20210114
  Transmission Date: 20210419
  Serious: Yes (Other)
  Sender: FDA-Public Use
  Company Number: IN-LUPIN PHARMACEUTICALS INC.-2020-11794

PATIENT
  Age: 49 Year
  Sex: Male

DRUGS (3)
  1. IMATINIB MESYLATE. [Suspect]
     Active Substance: IMATINIB MESYLATE
     Indication: EOSINOPHILIA
     Dosage: 400 MILLIGRAM, QD
     Route: 065
  2. IMATINIB MESYLATE. [Suspect]
     Active Substance: IMATINIB MESYLATE
     Indication: MYELOPROLIFERATIVE NEOPLASM
     Dosage: 600 MILLIGRAM, QD
     Route: 065
     Dates: start: 20190819
  3. IMATINIB MESYLATE. [Suspect]
     Active Substance: IMATINIB MESYLATE
     Dosage: 200 MILLIGRAM, QD
     Route: 065

REACTIONS (4)
  - Disease progression [Recovering/Resolving]
  - Paraesthesia [Recovering/Resolving]
  - Osteonecrosis of jaw [Recovering/Resolving]
  - Pain [Recovered/Resolved]
